FAERS Safety Report 4697639-5 (Version None)
Quarter: 2005Q2

REPORT INFORMATION
  Report Type: 
  Country: None (occurrence: None)
  Receive Date: 20050620
  Receipt Date: 20040608
  Transmission Date: 20051028
  Serious: Yes (Hospitalization)
  Sender: FDA-Public Use
  Company Number: 200414062US

PATIENT
  Age: 79 Year
  Sex: Male

DRUGS (3)
  1. LANTUS [Suspect]
     Indication: DIABETES MELLITUS NON-INSULIN-DEPENDENT
     Dosage: 30 U HS SC
     Route: 058
     Dates: end: 20040501
  2. LANTUS [Suspect]
     Indication: DIABETES MELLITUS NON-INSULIN-DEPENDENT
     Dosage: 18 U HS
     Dates: start: 20040501, end: 20020205
  3. GLIBENCLAMIDE (GLYNASE) [Concomitant]

REACTIONS (3)
  - BLOOD GLUCOSE DECREASED [None]
  - NAUSEA [None]
  - VOMITING [None]
